FAERS Safety Report 18526625 (Version 1)
Quarter: 2020Q4

REPORT INFORMATION
  Report Type: Spontaneous
  Country: FR (occurrence: FR)
  Receive Date: 20201120
  Receipt Date: 20201120
  Transmission Date: 20210114
  Serious: Yes (Other)
  Sender: FDA-Public Use
  Company Number: FR-SUN PHARMACEUTICAL INDUSTRIES LTD-2020R1-268221

PATIENT
  Age: 56 Year
  Sex: Male

DRUGS (4)
  1. CANGRELOR [Concomitant]
     Active Substance: CANGRELOR
     Indication: ANTIPLATELET THERAPY
     Dosage: 0.75 MICROGRAM/KILOGRAM
     Route: 065
  2. TICAGRELOR. [Suspect]
     Active Substance: TICAGRELOR
     Dosage: UNK (REINTRODUCED AT DAY 2)
     Route: 065
  3. ASPIRIN. [Suspect]
     Active Substance: ASPIRIN
     Indication: HAEMORRHAGE
     Dosage: 75 MILLIGRAM, DAILY
     Route: 065
  4. TICAGRELOR. [Suspect]
     Active Substance: TICAGRELOR
     Indication: HAEMORRHAGE
     Dosage: 90 MILLIGRAM, BID
     Route: 065

REACTIONS (1)
  - Hydrocephalus [Unknown]
